FAERS Safety Report 8524404-0 (Version None)
Quarter: 2012Q3

REPORT INFORMATION
  Report Type: 
  Country: None (occurrence: None)
  Receive Date: 20120720
  Receipt Date: 20120713
  Transmission Date: 20120928
  Serious: Yes (Other)
  Sender: FDA-Public Use
  Company Number: DK-PFIZER INC-2012170321

PATIENT
  Age: 8 Year
  Sex: Male
  Weight: 23.4 kg

DRUGS (1)
  1. GENOTROPIN [Suspect]
     Indication: GROWTH HORMONE DEFICIENCY
     Route: 058
     Dates: start: 20100129

REACTIONS (2)
  - JOINT DISLOCATION [None]
  - OSTEOCHONDROSIS [None]
